FAERS Safety Report 11964971 (Version 1)
Quarter: 2016Q1

REPORT INFORMATION
  Report Type: Spontaneous
  Country: IT (occurrence: IT)
  Receive Date: 20160127
  Receipt Date: 20160127
  Transmission Date: 20160526
  Serious: Yes (Other)
  Sender: FDA-Public Use
  Company Number: IT-ACCORD-037285

PATIENT
  Age: 75 Year
  Sex: Female
  Weight: 70 kg

DRUGS (1)
  1. PACLITAXEL/PACLITAXEL LIPOSOME [Suspect]
     Active Substance: PACLITAXEL
     Indication: PRODUCT USED FOR UNKNOWN INDICATION
     Dosage: AFTER THE ADMINISTRATION OF 20 CC OF THE SUSPECT DRUG , EXPERIENCED EVENT
     Route: 042
     Dates: start: 20160105, end: 20160105

REACTIONS (4)
  - Loss of consciousness [Recovered/Resolved]
  - Oxygen saturation decreased [None]
  - Cyanosis [Recovered/Resolved]
  - Blood pressure systolic increased [None]

NARRATIVE: CASE EVENT DATE: 20160105
